FAERS Safety Report 25007806 (Version 1)
Quarter: 2025Q1

REPORT INFORMATION
  Report Type: Spontaneous
  Country: IN (occurrence: IN)
  Receive Date: 20250225
  Receipt Date: 20250225
  Transmission Date: 20250408
  Serious: Yes (Death)
  Sender: SANOFI AVENTIS
  Company Number: IN-SA-2025SA052995

PATIENT
  Age: 58 Year
  Sex: Female

DRUGS (1)
  1. SOLIQUA 100/33 [Suspect]
     Active Substance: INSULIN GLARGINE\LIXISENATIDE
     Indication: Type 2 diabetes mellitus
     Dosage: 14 U, QD
     Route: 058
     Dates: start: 20241222, end: 20250218

REACTIONS (4)
  - Lip swelling [Fatal]
  - Condition aggravated [Fatal]
  - Burning sensation [Fatal]
  - Urticaria [Fatal]

NARRATIVE: CASE EVENT DATE: 20250103
